FAERS Safety Report 8192394-9 (Version None)
Quarter: 2012Q1

REPORT INFORMATION
  Report Type: 
  Country: None (occurrence: None)
  Receive Date: 20120308
  Receipt Date: 20120229
  Transmission Date: 20120608
  Serious: Yes (Hospitalization)
  Sender: FDA-Public Use
  Company Number: US-BIOGENIDEC-2012BI002887

PATIENT
  Age: 56 Year
  Sex: Female

DRUGS (5)
  1. AVONEX [Concomitant]
     Indication: MULTIPLE SCLEROSIS
     Route: 030
  2. TYSABRI [Suspect]
     Route: 042
     Dates: start: 20100816, end: 20120106
  3. TYSABRI [Suspect]
     Indication: MULTIPLE SCLEROSIS
     Route: 042
     Dates: start: 20070313, end: 20080821
  4. TYSABRI [Suspect]
     Route: 042
     Dates: start: 20090714, end: 20100405
  5. AVONEX [Concomitant]
     Route: 030
     Dates: end: 20050120

REACTIONS (4)
  - PNEUMONIA [None]
  - DYSPHAGIA [None]
  - MALAISE [None]
  - DRUG INTOLERANCE [None]
